FAERS Safety Report 19438842 (Version 1)
Quarter: 2021Q2

REPORT INFORMATION
  Report Type: Spontaneous
  Country: US (occurrence: US)
  Receive Date: 20210618
  Receipt Date: 20210618
  Transmission Date: 20210717
  Serious: Yes (Hospitalization, Other)
  Sender: FDA-Public Use
  Company Number: US-PFIZER INC-2021667444

PATIENT
  Age: 27 Year
  Sex: Female
  Weight: 106.14 kg

DRUGS (2)
  1. DEPO?PROVERA [Suspect]
     Active Substance: MEDROXYPROGESTERONE ACETATE
     Indication: CONTRACEPTION
     Dosage: UNK
     Dates: start: 202105
  2. LEVETIRACETAM. [Concomitant]
     Active Substance: LEVETIRACETAM
     Dosage: 500 MG, 2X/DAY,1 TABLET BY MOUTH EVERY 12 HOURS
     Route: 048

REACTIONS (5)
  - Seizure [Unknown]
  - Headache [Not Recovered/Not Resolved]
  - Incontinence [Unknown]
  - Menstrual disorder [Unknown]
  - Epilepsy [Unknown]

NARRATIVE: CASE EVENT DATE: 202105
